FAERS Safety Report 18292375 (Version 1)
Quarter: 2020Q3

REPORT INFORMATION
  Report Type: Spontaneous
  Country: US (occurrence: US)
  Receive Date: 20200921
  Receipt Date: 20200921
  Transmission Date: 20201103
  Serious: Yes (Other)
  Sender: FDA-Public Use
  Company Number: None

PATIENT
  Sex: Female

DRUGS (10)
  1. PREDNISONE. [Concomitant]
     Active Substance: PREDNISONE
  2. COSENTYX [Suspect]
     Active Substance: SECUKINUMAB
     Indication: PSORIATIC ARTHROPATHY
     Route: 058
     Dates: start: 20200623
  3. GABAPENTIN. [Concomitant]
     Active Substance: GABAPENTIN
  4. SUCRALFATE. [Concomitant]
     Active Substance: SUCRALFATE
  5. MELOXICAM. [Concomitant]
     Active Substance: MELOXICAM
  6. DULOXETINE. [Concomitant]
     Active Substance: DULOXETINE
  7. NUVARING [Concomitant]
     Active Substance: ETHINYL ESTRADIOL\ETONOGESTREL
  8. PANTOPRAZOLE [Concomitant]
     Active Substance: PANTOPRAZOLE
  9. AMOXICILLIN. [Concomitant]
     Active Substance: AMOXICILLIN
  10. ETONGESTREL ETHY EST [Concomitant]

REACTIONS (2)
  - Precancerous cells present [None]
  - Human papilloma virus test positive [None]
